FAERS Safety Report 9236261 (Version 12)
Quarter: 2014Q2

REPORT INFORMATION
  Report Type: Spontaneous
  Country: US (occurrence: US)
  Receive Date: 20130417
  Receipt Date: 20140403
  Transmission Date: 20141212
  Serious: No
  Sender: FDA-Public Use
  Company Number: US-009507513-1304USA005614

PATIENT
  Age: 62 Year
  Sex: Female

DRUGS (14)
  1. VICTRELIS [Suspect]
     Indication: CHRONIC HEPATITIS C
     Dosage: UNK
     Route: 048
     Dates: end: 20131031
  2. RIBAVIRIN [Suspect]
     Indication: CHRONIC HEPATITIS C
     Dosage: UNK
     Route: 048
     Dates: start: 20130219
  3. RIBAVIRIN [Suspect]
     Dosage: 600 MG, QW
     Route: 048
  4. RIBAVIRIN [Suspect]
     Dosage: DIVIDED DOSES, WEEK 28 OF TREATMENT (400 MG IN 1 D)
     Route: 048
     Dates: start: 20130219
  5. RIBAVIRIN [Suspect]
     Dosage: DIVIDED DOSE, WEEK 36 OF TREATMENT (800 MG)
     Route: 048
     Dates: start: 2013
  6. PEGASYS [Suspect]
     Indication: CHRONIC HEPATITIS C
     Dosage: PROCLICK (180 MICROGRAM, QW)
     Route: 065
     Dates: start: 20130219
  7. GLIPIZIDE [Concomitant]
     Dosage: UNK
     Dates: end: 2013
  8. CLONIDINE HYDROCHLORIDE [Concomitant]
     Dosage: UNK
  9. ENALAPRIL MALEATE [Concomitant]
     Dosage: UNK
     Route: 048
  10. HYDRALAZINE HYDROCHLORIDE [Concomitant]
     Dosage: UNK
     Route: 048
  11. HYDROCHLOROTHIAZIDE [Concomitant]
     Dosage: UNK
  12. PYRIDOXINE HYDROCHLORIDE [Concomitant]
     Dosage: UNK
  13. PANTOPRAZOLE SODIUM [Concomitant]
     Dosage: UNK
  14. ARANESP (DARBEPOETIN ALFA) [Concomitant]
     Dosage: 1 IN 1 WEEK

REACTIONS (17)
  - Nasal mucosal discolouration [Unknown]
  - Nasal dryness [Unknown]
  - Increased viscosity of nasal secretion [Unknown]
  - Sluggishness [Unknown]
  - Pulmonary mass [Unknown]
  - Full blood count decreased [Recovering/Resolving]
  - Ageusia [Unknown]
  - Peripheral swelling [Not Recovered/Not Resolved]
  - Peripheral swelling [Unknown]
  - Computerised tomogram abnormal [Unknown]
  - Bone disorder [Recovered/Resolved]
  - Epistaxis [Unknown]
  - Dysphonia [Unknown]
  - Weight decreased [Unknown]
  - Dizziness [Unknown]
  - Diarrhoea [Recovered/Resolved]
  - Muscle spasms [Unknown]
